FAERS Safety Report 13731142 (Version 6)
Quarter: 2017Q3

REPORT INFORMATION
  Report Type: Report from Study
  Country: AU (occurrence: AU)
  Receive Date: 20170707
  Receipt Date: 20170818
  Transmission Date: 20171127
  Serious: Yes (Other)
  Sender: FDA-Public Use
  Company Number: AU-SA-2017SA116011

PATIENT
  Age: 48 Year
  Sex: Female
  Weight: 78 kg

DRUGS (11)
  1. PARACETAMOL [Concomitant]
     Active Substance: ACETAMINOPHEN
     Route: 048
     Dates: start: 20170406
  2. SAR231893 [Suspect]
     Active Substance: DUPILUMAB
     Indication: NASAL POLYPS
     Route: 051
     Dates: start: 20170316, end: 20170316
  3. VENTOLIN [Concomitant]
     Active Substance: ALBUTEROL SULFATE
     Route: 055
     Dates: start: 1993
  4. SERETIDE [Concomitant]
     Active Substance: FLUTICASONE PROPIONATE\SALMETEROL XINAFOATE
     Route: 055
  5. SALINE [Concomitant]
     Active Substance: SODIUM CHLORIDE
     Dosage: SALINE LAVAGE DOSE:1 UNIT(S)
     Route: 045
     Dates: start: 20170301
  6. SAR231893 [Suspect]
     Active Substance: DUPILUMAB
     Indication: NASAL POLYPS
     Route: 051
     Dates: start: 20170328
  7. FLUTAMIDE. [Concomitant]
     Active Substance: FLUTAMIDE
     Route: 048
     Dates: start: 2015
  8. NASONEX [Suspect]
     Active Substance: MOMETASONE FUROATE
     Indication: NASAL POLYPS
     Route: 045
     Dates: start: 20170216
  9. MINOXIDIL. [Concomitant]
     Active Substance: MINOXIDIL
     Route: 048
     Dates: start: 2015
  10. PARACETAMOL [Concomitant]
     Active Substance: ACETAMINOPHEN
     Route: 048
     Dates: start: 20170610
  11. DICLOFENAC [Concomitant]
     Active Substance: DICLOFENAC
     Route: 048
     Dates: start: 20170610

REACTIONS (1)
  - Eosinophilia [Recovered/Resolved]

NARRATIVE: CASE EVENT DATE: 20170610
